FAERS Safety Report 12975714 (Version 1)
Quarter: 2016Q4

REPORT INFORMATION
  Report Type: Spontaneous
  Country: US (occurrence: US)
  Receive Date: 20161125
  Receipt Date: 20161125
  Transmission Date: 20170207
  Serious: No
  Sender: FDA-Public Use
  Company Number: US-SEPTODONT-201503106

PATIENT
  Age: 50 Year
  Sex: Female

DRUGS (1)
  1. MARCAINE [Suspect]
     Active Substance: BUPIVACAINE HYDROCHLORIDE
     Indication: LOCAL ANAESTHESIA
     Route: 004

REACTIONS (3)
  - Hypoaesthesia [Unknown]
  - Procedural pain [Unknown]
  - Paraesthesia [Not Recovered/Not Resolved]
